FAERS Safety Report 17090881 (Version 1)
Quarter: 2019Q4

REPORT INFORMATION
  Report Type: Spontaneous
  Country: US (occurrence: US)
  Receive Date: 20191031
  Receipt Date: 20191031
  Transmission Date: 20200122
  Serious: No
  Sender: FDA-Public Use
  Company Number: None

PATIENT
  Age: 53 Year
  Sex: Female

DRUGS (1)
  1. CEFEPIME 2 GM APOTEX [Suspect]
     Active Substance: CEFEPIME HYDROCHLORIDE
     Indication: URINARY TRACT INFECTION
     Dates: start: 20191008, end: 20191015

REACTIONS (2)
  - Rash [None]
  - Therapy cessation [None]

NARRATIVE: CASE EVENT DATE: 20191015
